FAERS Safety Report 7888769-5 (Version None)
Quarter: 2011Q4

REPORT INFORMATION
  Report Type: 
  Country: None (occurrence: None)
  Receive Date: 20111101
  Receipt Date: 20111018
  Transmission Date: 20120403
  Serious: Yes (Hospitalization, Other)
  Sender: FDA-Public Use
  Company Number: CIP11000510

PATIENT
  Age: 63 Year
  Sex: Female
  Weight: 68.2 kg

DRUGS (20)
  1. LEXAPRO [Concomitant]
  2. NEXIUM	/01479302/(ESOMEPRAZOLE MAGNESIUM) [Concomitant]
  3. ANTIVERT /00072802/ (MECLOZINE HYDROCHLORIDE) [Concomitant]
  4. CALCIUM CARBONATE [Concomitant]
  5. NAPROXEN SODIUM [Concomitant]
  6. INTERFERON [Concomitant]
  7. IRON (IRON) [Concomitant]
  8. ADVAIR HFA [Concomitant]
  9. VASOTEC /00574902/ (ENALAPRIL MALEATE) [Concomitant]
  10. ACTONEL [Suspect]
     Indication: OSTEOPENIA
     Dosage: 35 MG ONCE WEEKLY, ORAL
     Route: 048
     Dates: start: 20021014
  11. FISH OIL (FISH OIL) [Concomitant]
  12. PERCOCET [Concomitant]
  13. COLACE (DOCUSATE SODIUM) [Concomitant]
  14. VITAMIN D	/00107901/ (ERGOCALCIFEROL) [Concomitant]
  15. FOLIC ACID [Concomitant]
  16. PROCRIT	/00909301/ (ERYTHROPOIETIN) [Concomitant]
  17. DAPSONE [Concomitant]
  18. PROZAC	/00724401/ (FLUOXETINE) [Concomitant]
  19. TYLENOL  /00020001/ (PARACETAMOL) [Concomitant]
  20. MULTIVIT (VITAMINS NOS) [Concomitant]

REACTIONS (12)
  - ABASIA [None]
  - POST PROCEDURAL HAEMORRHAGE [None]
  - FALL [None]
  - OEDEMA PERIPHERAL [None]
  - DEVICE DISLOCATION [None]
  - LIMB ASYMMETRY [None]
  - FRACTURE DISPLACEMENT [None]
  - PATHOLOGICAL FRACTURE [None]
  - FEMUR FRACTURE [None]
  - FRACTURE MALUNION [None]
  - PAIN IN EXTREMITY [None]
  - MUSCULAR WEAKNESS [None]
